FAERS Safety Report 7541756-9 (Version None)
Quarter: 2011Q2

REPORT INFORMATION
  Report Type: 
  Country: None (occurrence: None)
  Receive Date: 20110613
  Receipt Date: 20110531
  Transmission Date: 20111010
  Serious: Yes (Hospitalization, Other)
  Sender: FDA-Public Use
  Company Number: US-ELI_LILLY_AND_COMPANY-US200911004437

PATIENT
  Sex: Female

DRUGS (14)
  1. OMEPRAZOLE [Concomitant]
  2. PHENYTOIN SODIUM CAP [Concomitant]
  3. IMMUNE GLOBULIN NOS [Concomitant]
     Dosage: UNK, OTHER
     Route: 042
  4. THEOPHYLLINE [Concomitant]
  5. PHENOBARBITAL TAB [Concomitant]
  6. CALCIUM W/VITAMIN D NOS [Concomitant]
  7. ALBUTEROL [Concomitant]
  8. PULMICORT [Concomitant]
  9. PREDNISONE [Concomitant]
  10. FORTEO [Suspect]
     Dosage: 20 UG, DAILY (1/D)
  11. FORTEO [Suspect]
     Dosage: 20 UG, DAILY (1/D)
  12. MUCINEX [Concomitant]
  13. FORTEO [Suspect]
     Indication: OSTEOPOROSIS
     Dosage: 20 UG, DAILY (1/D)
     Dates: start: 20091111
  14. FORTEO [Suspect]
     Dosage: 20 UG, QD

REACTIONS (15)
  - THROMBOSIS [None]
  - PNEUMONIA [None]
  - EYE INFECTION [None]
  - NASOPHARYNGITIS [None]
  - HEAD INJURY [None]
  - BALANCE DISORDER [None]
  - MOTOR DYSFUNCTION [None]
  - MALAISE [None]
  - NAUSEA [None]
  - MEMORY IMPAIRMENT [None]
  - TREMOR [None]
  - PANCREATITIS [None]
  - RECTAL HAEMORRHAGE [None]
  - BRONCHITIS CHRONIC [None]
  - ABDOMINAL DISTENSION [None]
